FAERS Safety Report 5773562-X (Version None)
Quarter: 2008Q2

REPORT INFORMATION
  Report Type: 
  Country: None (occurrence: None)
  Receive Date: 20080616
  Receipt Date: 20080612
  Transmission Date: 20081010
  Serious: Yes (Hospitalization)
  Sender: FDA-Public Use
  Company Number: FR-BAYER-200812470GPV

PATIENT
  Age: 55 Year
  Sex: Female
  Weight: 70 kg

DRUGS (1)
  1. MIRENA [Suspect]
     Indication: DRUG USE FOR UNKNOWN INDICATION
     Dosage: TOTAL DAILY DOSE: 20 ?G
     Route: 015
     Dates: start: 19980101, end: 20080114

REACTIONS (8)
  - ABDOMINAL PAIN [None]
  - ADENOMYOSIS [None]
  - ANAEMIA [None]
  - ENDOMETRIOSIS [None]
  - IUD MIGRATION [None]
  - PERITONEAL LESION [None]
  - PERITONITIS [None]
  - PYREXIA [None]
